FAERS Safety Report 19873610 (Version 2)
Quarter: 2021Q4

REPORT INFORMATION
  Report Type: Spontaneous
  Country: US (occurrence: US)
  Receive Date: 20210923
  Receipt Date: 20211005
  Transmission Date: 20220303
  Serious: No
  Sender: FDA-Public Use
  Company Number: US-AMGEN-USASP2021144765

PATIENT
  Sex: Male

DRUGS (15)
  1. OTEZLA [Suspect]
     Active Substance: APREMILAST
     Indication: Psoriasis
     Dosage: 30 MILLIGRAM, (TAKE ONE TABLET BY)
     Route: 048
  2. OTEZLA [Suspect]
     Active Substance: APREMILAST
     Dosage: 30 MILLIGRAM, (TAKE ONE TABLET BY)
     Route: 048
  3. ATORVASTATIN CALCIUM [Concomitant]
     Active Substance: ATORVASTATIN CALCIUM
  4. LISINOPRIL [Concomitant]
     Active Substance: LISINOPRIL
  5. FUROSEMIDE [Concomitant]
     Active Substance: FUROSEMIDE
  6. METOPROLOL SUCCINATE [Concomitant]
     Active Substance: METOPROLOL SUCCINATE
  7. PANTOPRAZOLE SODIUM [Concomitant]
     Active Substance: PANTOPRAZOLE SODIUM
  8. VIT D [VITAMIN D NOS] [Concomitant]
  9. CARVEDILOL [Concomitant]
     Active Substance: CARVEDILOL
  10. FERROUS SULFATE [Concomitant]
     Active Substance: FERROUS SULFATE
  11. JANUVIA [Concomitant]
     Active Substance: SITAGLIPTIN PHOSPHATE
  12. GLYBURIDE [Concomitant]
     Active Substance: GLYBURIDE
  13. VELTASSA [Concomitant]
     Active Substance: PATIROMER
  14. SODIUM CITRATE [Concomitant]
     Active Substance: SODIUM CITRATE
  15. ASPIRIN [Concomitant]
     Active Substance: ASPIRIN

REACTIONS (1)
  - Therapeutic product effect incomplete [Unknown]
